FAERS Safety Report 11322060 (Version 3)
Quarter: 2015Q3

REPORT INFORMATION
  Report Type: Spontaneous
  Country: US (occurrence: US)
  Receive Date: 20150729
  Receipt Date: 20150923
  Transmission Date: 20151125
  Serious: No
  Sender: FDA-Public Use
  Company Number: US-PFIZER INC-2015249044

PATIENT
  Age: 83 Year
  Sex: Female
  Weight: 46 kg

DRUGS (7)
  1. LYRICA [Suspect]
     Active Substance: PREGABALIN
     Indication: PAIN IN EXTREMITY
     Dosage: 75 MG 2 A DAY
  2. LYRICA [Suspect]
     Active Substance: PREGABALIN
     Dosage: 25 MG, 1X/DAY, (ONCE AT NIGHT)
     Route: 048
     Dates: start: 20150901
  3. LYRICA [Suspect]
     Active Substance: PREGABALIN
     Dosage: 25 MG, 1X/DAY (AT BED TIME)
     Route: 048
     Dates: start: 20150901
  4. HYDROCODONE [Suspect]
     Active Substance: HYDROCODONE
     Dosage: UNK (10/325)
  5. LYRICA [Suspect]
     Active Substance: PREGABALIN
     Indication: BACK PAIN
     Dosage: 75 MG, DAILY
  6. LYRICA [Suspect]
     Active Substance: PREGABALIN
     Dosage: 75 MG, UNK
     Dates: start: 201507
  7. LYRICA [Suspect]
     Active Substance: PREGABALIN
     Dosage: UNK, (CUT IT IN HALF)

REACTIONS (12)
  - Drug ineffective for unapproved indication [Not Recovered/Not Resolved]
  - Gait disturbance [Unknown]
  - Headache [Unknown]
  - Malaise [Unknown]
  - Dizziness [Unknown]
  - Intentional product misuse [Unknown]
  - Social avoidant behaviour [Unknown]
  - Insomnia [Unknown]
  - Feeling abnormal [Unknown]
  - Sleep disorder [Not Recovered/Not Resolved]
  - Drug intolerance [Unknown]
  - Body height decreased [Not Recovered/Not Resolved]

NARRATIVE: CASE EVENT DATE: 20150901
